FAERS Safety Report 8089103-0 (Version None)
Quarter: 2012Q1

REPORT INFORMATION
  Report Type: 
  Country: None (occurrence: None)
  Receive Date: 20120128
  Receipt Date: 20110708
  Transmission Date: 20120608
  Serious: No
  Sender: FDA-Public Use
  Company Number: US-ABBOTT-11P-163-0838165-00

PATIENT
  Sex: Female

DRUGS (1)
  1. HUMIRA [Suspect]
     Indication: PSORIASIS
     Dates: start: 20101001

REACTIONS (3)
  - UPPER RESPIRATORY TRACT CONGESTION [None]
  - INJECTION SITE HAEMATOMA [None]
  - COUGH [None]
